FAERS Safety Report 25092346 (Version 1)
Quarter: 2025Q1

REPORT INFORMATION
  Report Type: Spontaneous
  Country: IN (occurrence: IN)
  Receive Date: 20250319
  Receipt Date: 20250319
  Transmission Date: 20250408
  Serious: Yes (Hospitalization, Other)
  Sender: RANBAXY
  Company Number: IN-SUN PHARMACEUTICAL INDUSTRIES LTD-2025R1-498820

PATIENT
  Age: 41 Year
  Sex: Female

DRUGS (1)
  1. FOSPHENYTOIN [Suspect]
     Active Substance: FOSPHENYTOIN
     Indication: Seizure
     Route: 042

REACTIONS (3)
  - Therapeutic response decreased [Unknown]
  - Hypertension [Recovering/Resolving]
  - Visual impairment [Recovering/Resolving]
